FAERS Safety Report 6387243-5 (Version None)
Quarter: 2009Q3

REPORT INFORMATION
  Report Type: 
  Country: None (occurrence: None)
  Receive Date: 20090928
  Receipt Date: 20090918
  Transmission Date: 20100115
  Serious: Yes (Hospitalization, Other)
  Sender: FDA-Public Use
  Company Number: AUR-APU-2009-00723

PATIENT
  Age: 50 Year
  Sex: Female

DRUGS (10)
  1. LAMOTRIGINE [Suspect]
     Indication: BIPOLAR DISORDER
     Dosage: 25MG - DAILY - PO
     Route: 048
  2. LEVOTHYROXINE [Concomitant]
  3. LITHIUM [Concomitant]
  4. DILTIAZEM HCL [Concomitant]
  5. CLONAZEPAM [Concomitant]
  6. ZOLPIDEM [Concomitant]
  7. RISPERIDONE [Concomitant]
  8. OXYCODONE [Concomitant]
  9. DIPHENHYDRAMINE HCL [Concomitant]
  10. TYLENOL (CAPLET) [Concomitant]

REACTIONS (19)
  - ALANINE AMINOTRANSFERASE INCREASED [None]
  - ASPARTATE AMINOTRANSFERASE INCREASED [None]
  - BLOOD ALKALINE PHOSPHATASE INCREASED [None]
  - BLOOD GLUCOSE INCREASED [None]
  - CSF PROTEIN INCREASED [None]
  - CSF WHITE BLOOD CELL COUNT INCREASED [None]
  - DYSPNOEA [None]
  - GASTROENTERITIS [None]
  - HEADACHE [None]
  - LEUKOARAIOSIS [None]
  - MENINGITIS ASEPTIC [None]
  - MUSCULOSKELETAL STIFFNESS [None]
  - MYALGIA [None]
  - PHOTOPHOBIA [None]
  - PYREXIA [None]
  - RED BLOOD CELLS CSF POSITIVE [None]
  - TACHYCARDIA [None]
  - URINE LEUKOCYTE ESTERASE POSITIVE [None]
  - WHITE BLOOD CELL COUNT DECREASED [None]
